FAERS Safety Report 5347415-5 (Version None)
Quarter: 2007Q2

REPORT INFORMATION
  Report Type: 
  Country: None (occurrence: None)
  Receive Date: 20070507
  Receipt Date: 20060802
  Transmission Date: 20071010
  Serious: Yes (Hospitalization)
  Sender: FDA-Public Use
  Company Number: 2254

PATIENT
  Sex: Female

DRUGS (1)
  1. AVINZA [Suspect]
     Dosage: 30 MG DAILY PO
     Route: 048

REACTIONS (1)
  - SOMNOLENCE [None]
